FAERS Safety Report 6587442-3 (Version None)
Quarter: 2010Q1

REPORT INFORMATION
  Report Type: 
  Country: None (occurrence: None)
  Receive Date: 20100217
  Receipt Date: 20090527
  Transmission Date: 20100710
  Serious: No
  Sender: FDA-Public Use
  Company Number: US-ALLERGAN-0907482US

PATIENT
  Sex: Female

DRUGS (1)
  1. BOTOX [Suspect]
     Indication: BLEPHAROSPASM
     Dosage: 42 UNITS, SINGLE
     Route: 030
     Dates: start: 20090511, end: 20090511

REACTIONS (3)
  - DIZZINESS [None]
  - LAGOPHTHALMOS [None]
  - VISION BLURRED [None]
